FAERS Safety Report 9828521 (Version 1)
Quarter: 2014Q1

REPORT INFORMATION
  Report Type: Spontaneous
  Country: US (occurrence: US)
  Receive Date: 20140117
  Receipt Date: 20140117
  Transmission Date: 20141002
  Serious: Yes (Hospitalization)
  Sender: FDA-Public Use
  Company Number: US-VIIV HEALTHCARE LIMITED-A1056387A

PATIENT
  Age: 56 Year
  Sex: Male

DRUGS (6)
  1. TRIZIVIR [Suspect]
     Indication: ACQUIRED IMMUNODEFICIENCY SYNDROME
     Dosage: 1TAB TWICE PER DAY
     Route: 048
     Dates: start: 2000
  2. KALETRA [Suspect]
     Indication: ACQUIRED IMMUNODEFICIENCY SYNDROME
     Dosage: 2TAB TWICE PER DAY
     Route: 065
     Dates: start: 2000
  3. DIOVAN [Concomitant]
  4. CLOPIDOGREL [Concomitant]
  5. AMLODIPINE BESYLATE [Concomitant]
  6. ATORVASTATIN [Concomitant]

REACTIONS (6)
  - Cerebrovascular accident [Not Recovered/Not Resolved]
  - Blindness [Not Recovered/Not Resolved]
  - Blood cholesterol increased [Not Recovered/Not Resolved]
  - Blood pressure inadequately controlled [Unknown]
  - Disability [Unknown]
  - Carotid artery occlusion [Unknown]
